FAERS Safety Report 22285463 (Version 1)
Quarter: 2023Q2

REPORT INFORMATION
  Report Type: Spontaneous
  Country: FR (occurrence: FR)
  Receive Date: 20230504
  Receipt Date: 20230504
  Transmission Date: 20230721
  Serious: Yes (Other)
  Sender: FDA-Public Use
  Company Number: FR-Rhythm Pharmaceuticals, Inc.-2022RHM000191

PATIENT
  Age: 36 Year
  Sex: Male
  Weight: 125 kg

DRUGS (7)
  1. IMCIVREE [Suspect]
     Active Substance: SETMELANOTIDE
     Indication: Laurence-Moon-Bardet-Biedl syndrome
     Route: 065
     Dates: start: 20221018
  2. IMCIVREE [Suspect]
     Active Substance: SETMELANOTIDE
     Route: 065
  3. TESTOSTERONE [Concomitant]
     Active Substance: TESTOSTERONE
     Indication: Gonadotrophin deficiency
     Dosage: 1 INJECTION EVERY 3 WEEKS SINCE 2021
     Route: 065
     Dates: start: 2021
  4. TRULICITY [Concomitant]
     Active Substance: DULAGLUTIDE
     Indication: Type 2 diabetes mellitus
     Dosage: 4.5 PER WEEK SINCE 2019
     Route: 065
     Dates: start: 2019
  5. METFORMIN HYDROCHLORIDE [Concomitant]
     Active Substance: METFORMIN HYDROCHLORIDE
     Indication: Type 2 diabetes mellitus
     Dosage: IN THE MORNING AND IN THE EVENING SINCE 2017
     Route: 065
     Dates: start: 2017
  6. TRESIBA [Concomitant]
     Active Substance: INSULIN DEGLUDEC
     Indication: Type 2 diabetes mellitus
     Route: 065
     Dates: start: 2017
  7. PROZAC [Concomitant]
     Active Substance: FLUOXETINE HYDROCHLORIDE
     Indication: Product used for unknown indication
     Route: 065
     Dates: start: 20220501

REACTIONS (11)
  - Superficial spreading melanoma stage I [Not Recovered/Not Resolved]
  - Keratosis pilaris [Not Recovered/Not Resolved]
  - Onychomycosis [Not Recovered/Not Resolved]
  - Bronchitis [Unknown]
  - Cough [Unknown]
  - Middle insomnia [Unknown]
  - Melanocytic naevus [Not Recovered/Not Resolved]
  - Asthenia [Unknown]
  - Injection site pruritus [Unknown]
  - Injection site induration [Unknown]
  - Skin hyperpigmentation [Not Recovered/Not Resolved]

NARRATIVE: CASE EVENT DATE: 20221121
